FAERS Safety Report 20742852 (Version 1)
Quarter: 2022Q2

REPORT INFORMATION
  Report Type: Spontaneous
  Country: RO (occurrence: RO)
  Receive Date: 20220424
  Receipt Date: 20220424
  Transmission Date: 20220720
  Serious: Yes (Hospitalization, Other)
  Sender: FDA-Public Use
  Company Number: RO-GLAXOSMITHKLINE-RO2022EME061368

PATIENT
  Age: 66 Year
  Sex: Female

DRUGS (2)
  1. AMOXICILLIN\CLAVULANIC ACID [Suspect]
     Active Substance: AMOXICILLIN\CLAVULANIC ACID
     Indication: Product used for unknown indication
     Dosage: 2 DOSAGE FORM, ONCE A DAY(1 DF (TABLET), BID)
     Route: 065
     Dates: start: 201906
  2. CIPROFLOXACIN [Suspect]
     Active Substance: CIPROFLOXACIN
     Indication: Product used for unknown indication
     Dosage: UNK UNK, ONCE A DAY(BID, 500)
     Route: 065
     Dates: start: 201906

REACTIONS (9)
  - Pneumonia [Unknown]
  - Therapy cessation [Unknown]
  - General physical health deterioration [Unknown]
  - General physical condition abnormal [Unknown]
  - Pyrexia [Unknown]
  - Cough [Unknown]
  - Streptococcus test positive [Unknown]
  - Sputum purulent [Unknown]
  - Drug ineffective [Unknown]
